APPROVED DRUG PRODUCT: MYCOSTATIN
Active Ingredient: NYSTATIN
Strength: 200,000 UNITS
Dosage Form/Route: PASTILLE;ORAL
Application: N050619 | Product #001
Applicant: DELCOR ASSET CORP
Approved: Apr 9, 1987 | RLD: No | RS: No | Type: DISCN